FAERS Safety Report 6017690-2 (Version None)
Quarter: 2008Q4

REPORT INFORMATION
  Report Type: 
  Country: None (occurrence: None)
  Receive Date: 20081223
  Receipt Date: 20081211
  Transmission Date: 20090506
  Serious: Yes (Other)
  Sender: FDA-Public Use
  Company Number: JP-ROCHE-603830

PATIENT
  Sex: Male

DRUGS (1)
  1. TAMIFLU [Suspect]
     Indication: INFLUENZA
     Dosage: DRUG NAME: TAMIFLU CAPSULE.
     Route: 048
     Dates: start: 20081208, end: 20081208

REACTIONS (1)
  - ABNORMAL BEHAVIOUR [None]
